FAERS Safety Report 5768839-8 (Version None)
Quarter: 2008Q2

REPORT INFORMATION
  Report Type: 
  Country: None (occurrence: None)
  Receive Date: 20080612
  Receipt Date: 20080402
  Transmission Date: 20081010
  Serious: No
  Sender: FDA-Public Use
  Company Number: US-ABBOTT-08P-163-0442248-00

PATIENT
  Sex: Male
  Weight: 71.732 kg

DRUGS (2)
  1. HUMIRA [Suspect]
     Indication: ANKYLOSING SPONDYLITIS
     Route: 058
     Dates: start: 20080101, end: 20080214
  2. HUMIRA [Suspect]
     Dates: start: 20080311

REACTIONS (4)
  - PERINEAL INFECTION [None]
  - PROCEDURAL COMPLICATION [None]
  - WOUND COMPLICATION [None]
  - WOUND DRAINAGE [None]
